FAERS Safety Report 8371701-8 (Version None)
Quarter: 2012Q2

REPORT INFORMATION
  Report Type: 
  Country: None (occurrence: None)
  Receive Date: 20120518
  Receipt Date: 20120516
  Transmission Date: 20120825
  Serious: Yes (Disabling, Other)
  Sender: FDA-Public Use
  Company Number: US-PFIZER INC-2012082844

PATIENT
  Sex: Female

DRUGS (1)
  1. CHANTIX [Suspect]
     Indication: SMOKING CESSATION THERAPY
     Dosage: UNK
     Dates: start: 20070801, end: 20070901

REACTIONS (9)
  - HALLUCINATION [None]
  - DEPRESSION [None]
  - ABNORMAL DREAMS [None]
  - NIGHTMARE [None]
  - AGGRESSION [None]
  - INSOMNIA [None]
  - SUICIDAL IDEATION [None]
  - ANXIETY [None]
  - IRRITABILITY [None]
